FAERS Safety Report 7747566-1 (Version None)
Quarter: 2011Q3

REPORT INFORMATION
  Report Type: 
  Country: None (occurrence: None)
  Receive Date: 20110913
  Receipt Date: 20110831
  Transmission Date: 20111222
  Serious: Yes (Other)
  Sender: FDA-Public Use
  Company Number: SE-ELI_LILLY_AND_COMPANY-SE201109000256

PATIENT
  Sex: Male

DRUGS (1)
  1. CYMBALTA [Suspect]
     Indication: DEPRESSION
     Dosage: 60 MG, UNK
     Dates: start: 20050101, end: 20060101

REACTIONS (6)
  - BLISTER [None]
  - RASH PRURITIC [None]
  - HYPERHIDROSIS [None]
  - ABDOMINAL MASS [None]
  - HYPERTENSION [None]
  - FATIGUE [None]
